FAERS Safety Report 5313328-8 (Version None)
Quarter: 2007Q1

REPORT INFORMATION
  Report Type: 
  Country: None (occurrence: None)
  Receive Date: 20070201
  Receipt Date: 20061113
  Transmission Date: 20070707
  Serious: Yes (Hospitalization)
  Sender: FDA-Public Use
  Company Number: 149840USA

PATIENT
  Age: 79 Year
  Sex: Male

DRUGS (1)
  1. GLIMEPIRIDE 1 MG, 2 MG + 4 MG TABLETS (GLIMEPIRIDE) [Suspect]
     Dosage: TOOK 5 DOSES TOTAL (2 MG), ORAL
     Route: 048

REACTIONS (2)
  - HYPOGLYCAEMIA [None]
  - MEDICATION ERROR [None]
